FAERS Safety Report 7809831-9 (Version None)
Quarter: 2011Q4

REPORT INFORMATION
  Report Type: 
  Country: None (occurrence: None)
  Receive Date: 20111007
  Receipt Date: 20110926
  Transmission Date: 20120403
  Serious: Yes (Hospitalization)
  Sender: FDA-Public Use
  Company Number: B0752682A

PATIENT
  Age: 62 Year
  Sex: Male

DRUGS (1)
  1. LAMIVUDINE (EPIVIR HBV) [Suspect]
     Indication: HEPATITIS B

REACTIONS (3)
  - DYSPHAGIA [None]
  - DYSARTHRIA [None]
  - MITOCHONDRIAL MYOPATHY [None]
